FAERS Safety Report 6847293-9 (Version None)
Quarter: 2010Q3

REPORT INFORMATION
  Report Type: 
  Country: None (occurrence: None)
  Receive Date: 20100716
  Receipt Date: 20100706
  Transmission Date: 20110219
  Serious: Yes (Other)
  Sender: FDA-Public Use
  Company Number: US-JNJFOC-20100702403

PATIENT
  Sex: Female

DRUGS (12)
  1. RISPERDAL [Suspect]
     Indication: PSYCHOTIC DISORDER
     Route: 048
  2. RISPERDAL [Suspect]
     Route: 048
  3. RISPERDAL [Suspect]
     Dosage: 0.5 MG DAILY ONCECFOR 7 DAYS AND THEN DISCONTINUED
     Route: 048
  4. RISPERDAL [Suspect]
     Route: 048
  5. RISPERDAL [Suspect]
     Route: 048
  6. RISPERDAL [Suspect]
     Route: 048
  7. RISPERDAL [Suspect]
     Indication: POST-TRAUMATIC STRESS DISORDER
     Dosage: 0.5 MG DAILY ONCECFOR 7 DAYS AND THEN DISCONTINUED
     Route: 048
  8. RISPERDAL [Suspect]
     Route: 048
  9. RISPERDAL [Suspect]
     Route: 048
  10. RISPERDAL [Suspect]
     Route: 048
  11. RISPERDAL [Suspect]
     Route: 048
  12. RISPERDAL [Suspect]
     Route: 048

REACTIONS (15)
  - ABDOMINAL PAIN UPPER [None]
  - AMNESIA [None]
  - BLADDER PAIN [None]
  - BONE PAIN [None]
  - DEPRESSION [None]
  - DYSKINESIA [None]
  - EYELID FUNCTION DISORDER [None]
  - FEAR OF DEATH [None]
  - GAIT DISTURBANCE [None]
  - GALACTORRHOEA [None]
  - NIGHTMARE [None]
  - SALIVARY HYPERSECRETION [None]
  - TONGUE DISORDER [None]
  - TREMOR [None]
  - URINE ABNORMALITY [None]
